FAERS Safety Report 6555576-5 (Version None)
Quarter: 2010Q1

REPORT INFORMATION
  Report Type: 
  Country: None (occurrence: None)
  Receive Date: 20100128
  Receipt Date: 20100121
  Transmission Date: 20100710
  Serious: No
  Sender: FDA-Public Use
  Company Number: US-BAYER-201010940BCC

PATIENT
  Age: 25 Year
  Sex: Male
  Weight: 75 kg

DRUGS (4)
  1. ALEVE (CAPLET) [Suspect]
     Indication: HEADACHE
     Dosage: TOOK 2 OR 3 ALEVE CAPLETS
     Route: 048
     Dates: start: 20091201, end: 20091201
  2. UNKNOWN ANTI-NAUSEA [Concomitant]
     Indication: NAUSEA
     Route: 042
  3. ULTRAM [Concomitant]
     Indication: PAIN
  4. VICODIN [Concomitant]
     Indication: PAIN

REACTIONS (6)
  - HEADACHE [None]
  - INSOMNIA [None]
  - IRRITABILITY [None]
  - MUSCULOSKELETAL PAIN [None]
  - PAIN OF SKIN [None]
  - RESTLESSNESS [None]
